FAERS Safety Report 5801950-1 (Version None)
Quarter: 2008Q3

REPORT INFORMATION
  Report Type: 
  Country: None (occurrence: None)
  Receive Date: 20080707
  Receipt Date: 20080612
  Transmission Date: 20090109
  Serious: Yes (Other)
  Sender: FDA-Public Use
  Company Number: PHBS2008JP04968

PATIENT
  Age: 64 Year
  Sex: Female

DRUGS (1)
  1. IMATINIB MESYLATE [Suspect]
     Indication: PERITONEAL NEOPLASM
     Dosage: UNK
     Route: 065

REACTIONS (4)
  - GASTRECTOMY [None]
  - GASTRIC CANCER [None]
  - NEPHRECTOMY [None]
  - RENAL CELL CARCINOMA [None]
